FAERS Safety Report 21843269 (Version 1)
Quarter: 2023Q1

REPORT INFORMATION
  Report Type: Spontaneous
  Country: US (occurrence: US)
  Receive Date: 20230110
  Receipt Date: 20230110
  Transmission Date: 20230417
  Serious: No
  Sender: FDA-Public Use
  Company Number: US-PFIZER INC-PV202300002560

PATIENT
  Age: 50 Year
  Sex: Female

DRUGS (1)
  1. XELJANZ XR [Suspect]
     Active Substance: TOFACITINIB CITRATE
     Dosage: 11 MG

REACTIONS (12)
  - Arthralgia [Unknown]
  - Pyrexia [Unknown]
  - Antinuclear antibody positive [Unknown]
  - Joint swelling [Unknown]
  - Arthropathy [Unknown]
  - Joint stiffness [Unknown]
  - Joint range of motion decreased [Unknown]
  - Fatigue [Unknown]
  - Headache [Unknown]
  - Oropharyngeal pain [Unknown]
  - Vertigo [Unknown]
  - Rhinitis [Unknown]
